FAERS Safety Report 6909533-7 (Version None)
Quarter: 2010Q3

REPORT INFORMATION
  Report Type: 
  Country: None (occurrence: None)
  Receive Date: 20100803
  Receipt Date: 20100727
  Transmission Date: 20110219
  Serious: Yes (Death)
  Sender: FDA-Public Use
  Company Number: 2010JP004357

PATIENT

DRUGS (2)
  1. TACROLIMUS [Suspect]
     Indication: RENAL TRANSPLANT
     Dosage: 5.6 MG/M2/D,  1.56 MG/M2/D
  2. PREDNISOLONE [Concomitant]

REACTIONS (1)
  - LIVER DISORDER [None]
